FAERS Safety Report 14694186 (Version 1)
Quarter: 2018Q1

REPORT INFORMATION
  Report Type: Spontaneous
  Country: DE (occurrence: DE)
  Receive Date: 20180329
  Receipt Date: 20180329
  Transmission Date: 20180509
  Serious: Yes (Other)
  Sender: FDA-Public Use
  Company Number: DE-PFIZER INC-2018123168

PATIENT
  Sex: Female

DRUGS (1)
  1. OXALIPLATIN. [Suspect]
     Active Substance: OXALIPLATIN
     Dosage: 5 MG/ML, UNK
     Route: 042

REACTIONS (2)
  - Diplegia [Not Recovered/Not Resolved]
  - Monoplegia [Not Recovered/Not Resolved]
